FAERS Safety Report 9116511 (Version 2)
Quarter: 2013Q4

REPORT INFORMATION
  Report Type: Other
  Country: GB (occurrence: US)
  Receive Date: 20130225
  Receipt Date: 20131108
  Transmission Date: 20140711
  Serious: Yes (Death)
  Sender: FDA-Public Use
  Company Number: GB-OPTIMER-20130047

PATIENT
  Age: 83 Year
  Sex: Male
  Weight: 120 kg

DRUGS (14)
  1. FIDAXOMICIN [Suspect]
     Indication: CLOSTRIDIAL INFECTION
     Dosage: 200 MG, BID
     Route: 048
     Dates: start: 20121210, end: 20121220
  2. ASPIRIN [Concomitant]
     Dosage: UNK
     Route: 065
  3. ATENOLOL [Concomitant]
     Dosage: UNK
     Route: 065
  4. IMMUNOGLOBULIN [Concomitant]
     Dosage: UNK
     Route: 042
  5. LEVOFLOXACIN [Concomitant]
     Dosage: UNK
     Route: 065
  6. LEVOTHYROXINE [Concomitant]
     Dosage: UNK
     Route: 065
  7. METFORMIN [Concomitant]
     Dosage: UNK
     Route: 065
  8. METRONIDAZOLE [Concomitant]
     Dosage: UNK
     Route: 065
  9. MIRTAZAPINE [Concomitant]
     Dosage: UNK
     Route: 065
  10. OMEPRAZOLE [Concomitant]
     Dosage: UNK
     Route: 065
  11. RAMIPRIL [Concomitant]
     Dosage: UNK
     Route: 065
  12. RANITIDINE [Concomitant]
     Dosage: UNK
     Route: 065
  13. TAZOCIN [Concomitant]
     Dosage: UNK
     Route: 065
  14. VANCOMYCIN [Concomitant]
     Dosage: UNK
     Route: 065

REACTIONS (4)
  - Clostridium difficile colitis [Fatal]
  - Disease progression [Fatal]
  - Depression [Not Recovered/Not Resolved]
  - Treatment failure [Not Recovered/Not Resolved]
